FAERS Safety Report 14665198 (Version 4)
Quarter: 2018Q2

REPORT INFORMATION
  Report Type: Report from Study
  Country: DE (occurrence: DE)
  Receive Date: 20180321
  Receipt Date: 20180622
  Transmission Date: 20180711
  Serious: Yes (Death, Life-Threatening, Hospitalization, Other)
  Sender: FDA-Public Use
  Company Number: DE-PFIZER INC-2018114765

PATIENT
  Sex: Female
  Weight: 85 kg

DRUGS (15)
  1. EXEMESTANE. [Suspect]
     Active Substance: EXEMESTANE
     Indication: BREAST CANCER METASTATIC
     Dosage: 25 MG, QD
     Route: 048
     Dates: start: 20130402, end: 20130520
  2. ZOLADEX [Concomitant]
     Active Substance: GOSERELIN ACETATE
     Dosage: EVERY 4 WEEKS
     Route: 065
  3. SEVREDOL [Concomitant]
     Active Substance: MORPHINE
     Dosage: 20 MG, UP TO 4 TIMES DAILY
     Route: 065
  4. BONDRONAT [Concomitant]
     Active Substance: IBANDRONIC ACID
     Dosage: UNK, CYCLIC, EVERY 3 WEEKS
     Route: 042
  5. PERENTEROL [Concomitant]
     Active Substance: SACCHAROMYCES CEREVISIAE
     Route: 065
  6. PANTOZOL [Concomitant]
     Active Substance: PANTOPRAZOLE SODIUM
     Dosage: 20 MG, QD
     Route: 065
  7. CITALOPRAM [Concomitant]
     Active Substance: CITALOPRAM HYDROBROMIDE
     Dosage: 30 MG, QD
     Route: 065
  8. FASLODEX [Concomitant]
     Active Substance: FULVESTRANT
     Dosage: 500 MG, 2 PER MONTH
     Route: 065
  9. AFINITOR [Suspect]
     Active Substance: EVEROLIMUS
     Dosage: 10 MG, EVERY TWO DAYS
     Route: 048
     Dates: start: 20130516, end: 20130520
  10. METHIZOL [Concomitant]
     Active Substance: METHIMAZOLE
     Dosage: 5 MG, QD
     Route: 065
  11. MORPHINE [Concomitant]
     Active Substance: MORPHINE
     Route: 065
  12. LYRICA [Concomitant]
     Active Substance: PREGABALIN
     Dosage: 225 MG, 2X/DAY
     Route: 065
  13. AFINITOR [Suspect]
     Active Substance: EVEROLIMUS
     Indication: BREAST CANCER METASTATIC
     Dosage: 10 MG, QD
     Route: 048
     Dates: start: 20130402, end: 20130515
  14. OBSIDAN [Concomitant]
     Dosage: 40 MG, BID
     Route: 065
  15. AMITRIPTYLINE [Concomitant]
     Active Substance: AMITRIPTYLINE
     Dosage: 100 MG, QD
     Route: 065

REACTIONS (5)
  - Left ventricular failure [Fatal]
  - Dyspnoea [Fatal]
  - Atrial fibrillation [Fatal]
  - Hypertension [Fatal]
  - Stomatitis [Not Recovered/Not Resolved]

NARRATIVE: CASE EVENT DATE: 20130404
